FAERS Safety Report 15221779 (Version 1)
Quarter: 2018Q3

REPORT INFORMATION
  Report Type: Spontaneous
  Country: US (occurrence: US)
  Receive Date: 20180705
  Receipt Date: 20180705
  Transmission Date: 20181010
  Serious: Yes (Life-Threatening, Disabling)
  Sender: FDA-Public Use
  Company Number: None

PATIENT
  Age: 64 Year
  Sex: Female
  Weight: 47.25 kg

DRUGS (18)
  1. LORAZEPAM. [Concomitant]
     Active Substance: LORAZEPAM
  2. MAGNESIUM [Concomitant]
     Active Substance: MAGNESIUM
  3. NADALOL [Concomitant]
  4. MUCINEX [Concomitant]
     Active Substance: GUAIFENESIN
  5. VITAMIN D3 [Concomitant]
     Active Substance: CHOLECALCIFEROL
  6. LYSINE [Concomitant]
     Active Substance: LYSINE
  7. FIORICET [Concomitant]
     Active Substance: ACETAMINOPHEN\BUTALBITAL\CAFFEINE
  8. SALINE [Concomitant]
     Active Substance: SODIUM CHLORIDE
  9. GABAPENTIN. [Concomitant]
     Active Substance: GABAPENTIN
  10. VALTREX [Concomitant]
     Active Substance: VALACYCLOVIR HYDROCHLORIDE
  11. CHLORHEXIDINE [Concomitant]
     Active Substance: CHLORHEXIDINE
  12. ALIGN [Concomitant]
     Active Substance: BIFIDOBACTERIUM LONGUM SUBSP. INFANTIS
  13. BOTOX [Suspect]
     Active Substance: ONABOTULINUMTOXINA
     Indication: MIGRAINE
     Dosage: ?          OTHER STRENGTH:1;QUANTITY:1 1;OTHER FREQUENCY:EVERY 3 MONTHS;?
     Route: 058
  14. CELEBREX [Concomitant]
     Active Substance: CELECOXIB
  15. NEXIUM [Concomitant]
     Active Substance: ESOMEPRAZOLE MAGNESIUM
  16. BUDESONIDE. [Suspect]
     Active Substance: BUDESONIDE
  17. XYLITOL [Concomitant]
     Active Substance: XYLITOL
  18. VANCOMYCIN [Concomitant]
     Active Substance: VANCOMYCIN

REACTIONS (9)
  - Retching [None]
  - Sinusitis [None]
  - Pharyngeal hypoaesthesia [None]
  - Dysphagia [None]
  - Asthenia [None]
  - Tongue disorder [None]
  - Choking [None]
  - Tonsillitis [None]
  - Productive cough [None]

NARRATIVE: CASE EVENT DATE: 20180621
